FAERS Safety Report 10376239 (Version 1)
Quarter: 2014Q1

REPORT INFORMATION
  Report Type: Spontaneous
  Country: US (occurrence: None)
  Receive Date: 20140306
  Receipt Date: 20140306
  Transmission Date: 20141002
  Serious: Yes (Hospitalization)
  Sender: FDA-Public Use
  Company Number: 163-21880-13042105

PATIENT
  Age: 66 Year
  Sex: Male

DRUGS (3)
  1. REVLIMID [Suspect]
     Indication: PLASMA CELL MYELOMA
     Dosage: 25MG, 21 IN 21 D, PO
     Route: 048
     Dates: start: 20120823
  2. VITAMIN D (ERGOCALCIFEROL) [Concomitant]
  3. METRONIDAZOLE (METRONIDAZOLE) [Concomitant]

REACTIONS (2)
  - Thrombosis [None]
  - Neuropathy peripheral [None]
